FAERS Safety Report 4831946-8 (Version None)
Quarter: 2005Q4

REPORT INFORMATION
  Report Type: 
  Country: None (occurrence: None)
  Receive Date: 20051116
  Receipt Date: 20051103
  Transmission Date: 20060501
  Serious: Yes (Disabling)
  Sender: FDA-Public Use
  Company Number: S05-FRA-04968-01

PATIENT
  Age: 43 Year
  Sex: Female
  Weight: 90 kg

DRUGS (3)
  1. ESCITALOPRAM OXALATE [Suspect]
     Indication: DEPRESSION
     Dosage: 10 MG QD PO
     Route: 048
     Dates: start: 20050927, end: 20051003
  2. LEXOMIL (BROMAZEPAM) [Concomitant]
  3. NEXIUM [Concomitant]

REACTIONS (1)
  - GENERALISED OEDEMA [None]
